FAERS Safety Report 6566013-9 (Version None)
Quarter: 2010Q1

REPORT INFORMATION
  Report Type: 
  Country: None (occurrence: None)
  Receive Date: 20100129
  Receipt Date: 20100129
  Transmission Date: 20100710
  Serious: Yes (Other)
  Sender: FDA-Public Use
  Company Number: None

PATIENT
  Age: 45 Year
  Sex: Female
  Weight: 58.9676 kg

DRUGS (1)
  1. ESTRADIOL [Suspect]
     Indication: HOT FLUSH
     Dosage: 1/2 TAB 1 DAILY
     Dates: start: 20080401

REACTIONS (1)
  - HAIR GROWTH ABNORMAL [None]
